FAERS Safety Report 4888198-2 (Version None)
Quarter: 2006Q1

REPORT INFORMATION
  Report Type: 
  Country: None (occurrence: None)
  Receive Date: 20060123
  Receipt Date: 20060113
  Transmission Date: 20060701
  Serious: Yes (Death)
  Sender: FDA-Public Use
  Company Number: PHHO2006JP01090

PATIENT
  Age: 64 Year
  Sex: Male

DRUGS (4)
  1. DIOVAN [Suspect]
     Dosage: 80 MG, QD
     Route: 048
     Dates: start: 20021124, end: 20021221
  2. DIOVAN [Suspect]
     Dosage: 80 MG, BID
     Route: 048
     Dates: start: 20021222
  3. CONIEL [Concomitant]
     Indication: HYPERTENSION
     Dates: start: 20021007
  4. ADALAT [Concomitant]
     Indication: HYPERTENSION
     Dates: start: 20041222

REACTIONS (4)
  - AORTIC DISSECTION [None]
  - CARDIO-RESPIRATORY ARREST [None]
  - CHEST PAIN [None]
  - LOSS OF CONSCIOUSNESS [None]
